FAERS Safety Report 20739296 (Version 1)
Quarter: 2022Q2

REPORT INFORMATION
  Report Type: Spontaneous
  Country: ES (occurrence: ES)
  Receive Date: 20220422
  Receipt Date: 20220422
  Transmission Date: 20220721
  Serious: Yes (Hospitalization)
  Sender: FDA-Public Use
  Company Number: None

PATIENT
  Age: 8 Year
  Sex: Female

DRUGS (2)
  1. OLUMIANT [Suspect]
     Active Substance: BARICITINIB
     Indication: Gene mutation
     Dosage: UNK UNK, UNKNOWN
     Route: 048
     Dates: start: 20190904, end: 20211116
  2. OLUMIANT [Suspect]
     Active Substance: BARICITINIB
     Dosage: 1 MG, DAILY
     Route: 048
     Dates: start: 20211129

REACTIONS (3)
  - Coombs positive haemolytic anaemia [Recovered/Resolved]
  - Thrombocytopenia [Recovering/Resolving]
  - Off label use [Unknown]

NARRATIVE: CASE EVENT DATE: 20211123
